FAERS Safety Report 9696029 (Version 2)
Quarter: 2013Q4

REPORT INFORMATION
  Report Type: Report from Study
  Country: FR (occurrence: FR)
  Receive Date: 20131119
  Receipt Date: 20131219
  Transmission Date: 20140711
  Serious: Yes (Hospitalization)
  Sender: FDA-Public Use
  Company Number: FR-TEVA-445007USA

PATIENT
  Age: 74 Year
  Sex: Male
  Weight: 59 kg

DRUGS (6)
  1. BENDAMUSTINE [Suspect]
     Indication: CHRONIC LYMPHOCYTIC LEUKAEMIA
     Dosage: UNKNOWN/D
     Route: 042
     Dates: start: 20131002
  2. BENDAMUSTINE [Suspect]
     Dosage: UNKNOWN/D
     Route: 042
     Dates: start: 20130905
  3. RITUXIMAB [Suspect]
     Indication: CHRONIC LYMPHOCYTIC LEUKAEMIA
     Route: 042
     Dates: start: 20131001
  4. RITUXIMAB [Suspect]
     Route: 042
     Dates: start: 20130903
  5. IBRUTINIB/PLACEBO [Suspect]
     Indication: CHRONIC LYMPHOCYTIC LEUKAEMIA
     Dosage: 420 MILLIGRAM DAILY;
     Dates: start: 20130905
  6. IBRUTINIB/PLACEBO [Suspect]
     Dosage: 420 MILLIGRAM DAILY;
     Dates: start: 20131103

REACTIONS (1)
  - Arthritis bacterial [Not Recovered/Not Resolved]
